FAERS Safety Report 24335045 (Version 1)
Quarter: 2024Q3

REPORT INFORMATION
  Report Type: Spontaneous
  Country: US (occurrence: US)
  Receive Date: 20240918
  Receipt Date: 20240918
  Transmission Date: 20241017
  Serious: No
  Sender: BRISTOL MYERS SQUIBB
  Company Number: US-BRISTOL-MYERS SQUIBB COMPANY-2024-148154

PATIENT
  Age: 50 Year
  Sex: Female

DRUGS (3)
  1. ORENCIA [Suspect]
     Active Substance: ABATACEPT
     Indication: Rheumatoid arthritis
     Route: 058
     Dates: start: 202103
  2. ORENCIA [Suspect]
     Active Substance: ABATACEPT
     Indication: Uterine leiomyoma
  3. ORENCIA [Suspect]
     Active Substance: ABATACEPT
     Indication: Lysosomal storage disorder

REACTIONS (4)
  - Joint swelling [Unknown]
  - Arthralgia [Unknown]
  - Insurance issue [Unknown]
  - Therapy interrupted [Unknown]
